FAERS Safety Report 15779100 (Version 2)
Quarter: 2019Q1

REPORT INFORMATION
  Report Type: Spontaneous
  Country: US (occurrence: US)
  Receive Date: 20190101
  Receipt Date: 20190215
  Transmission Date: 20190417
  Serious: No
  Sender: FDA-Public Use
  Company Number: US-JNJFOC-20181220198

PATIENT
  Sex: Female
  Weight: 71.67 kg

DRUGS (1)
  1. ELMIRON [Suspect]
     Active Substance: PENTOSAN POLYSULFATE SODIUM
     Indication: MICTURITION URGENCY
     Route: 048
     Dates: end: 2018

REACTIONS (4)
  - Product label issue [Unknown]
  - Alopecia [Unknown]
  - Visual impairment [Unknown]
  - Diplopia [Unknown]

NARRATIVE: CASE EVENT DATE: 2017
